FAERS Safety Report 6677572-X (Version None)
Quarter: 2010Q2

REPORT INFORMATION
  Report Type: 
  Country: None (occurrence: None)
  Receive Date: 20100412
  Receipt Date: 20100216
  Transmission Date: 20101027
  Serious: No
  Sender: FDA-Public Use
  Company Number: US-ALEXION-A201000188

PATIENT
  Sex: Female

DRUGS (10)
  1. SOLIRIS [Suspect]
     Indication: PAROXYSMAL NOCTURNAL HAEMOGLOBINURIA
     Dosage: 600 MG, QW
     Route: 042
     Dates: start: 20080312
  2. SOLIRIS [Suspect]
     Dosage: 900 MG, Q2W
     Route: 042
     Dates: start: 20080409
  3. MAGNESIUM [Concomitant]
     Dosage: 100 MG, QD
     Route: 048
  4. DIGOXIN [Concomitant]
     Dosage: 250 MG, QD
     Route: 048
  5. ATENOLOL [Concomitant]
     Dosage: 50 MG, QD
     Route: 048
  6. PLAVIX [Concomitant]
     Dosage: 75 MG, QD
     Route: 048
  7. VITAMIN A [Concomitant]
     Dosage: 400 UNITS
     Route: 048
  8. K-DUR [Concomitant]
     Dosage: 10 MEQ
     Route: 048
  9. EXJADE [Concomitant]
     Dosage: UNK
     Route: 048
  10. LOMOTIL                            /00034001/ [Concomitant]
     Dosage: UNK
     Route: 048

REACTIONS (2)
  - HAEMOGLOBIN DECREASED [None]
  - HAIR DISORDER [None]
